FAERS Safety Report 8771130 (Version 1)
Quarter: 2012Q4

REPORT INFORMATION
  Report Type: 
  Country: CN (occurrence: CN)
  Receive Date: 20120906
  Receipt Date: 20120906
  Transmission Date: 20130627
  Serious: Yes (Hospitalization)
  Sender: FDA-Public Use
  Company Number: CN-ASTRAZENECA-2012SE67893

PATIENT
  Sex: Female
  Weight: 63 kg

DRUGS (2)
  1. PLENDIL [Suspect]
     Indication: HYPERTENSION
     Route: 048
     Dates: start: 20110515, end: 20110520
  2. PLENDIL [Suspect]
     Indication: HYPERTENSION
     Route: 048
     Dates: start: 20110523, end: 20110523

REACTIONS (5)
  - Hypertension [Unknown]
  - Vertebrobasilar insufficiency [Unknown]
  - Headache [Unknown]
  - Dizziness [Recovered/Resolved]
  - Drug ineffective [Unknown]
